FAERS Safety Report 9406013 (Version 2)
Quarter: 2016Q2

REPORT INFORMATION
  Report Type: Report from Study
  Country: US (occurrence: US)
  Receive Date: 20130717
  Receipt Date: 20160426
  Transmission Date: 20160815
  Serious: Yes (Other)
  Sender: FDA-Public Use
  Company Number: US-009507513-1307FRA007729

PATIENT

DRUGS (2)
  1. PEGASYS [Suspect]
     Active Substance: PEGINTERFERON ALFA-2A
     Dosage: 180 MICROGRAM, QW
     Route: 058
  2. REBETOL [Suspect]
     Active Substance: RIBAVIRIN
     Indication: HEPATITIS C
     Dosage: 1000 MG FOR BODY WEIGHT LESS THAN 75 KG, 1200 MG FOR BODY WEIGHT GREATER THAN 75KG, IN 2 DIVIDED DOS
     Route: 048

REACTIONS (21)
  - Angina pectoris [Unknown]
  - Acute psychosis [Unknown]
  - Suicide attempt [Unknown]
  - Appendicectomy [Unknown]
  - Lymphangitis [Unknown]
  - Upper respiratory tract infection [Unknown]
  - Microvascular coronary artery disease [Unknown]
  - Ischaemic stroke [Unknown]
  - Anal abscess [Unknown]
  - Dehydration [Unknown]
  - Endometrial hyperplasia [Unknown]
  - Parapsoriasis [Unknown]
  - Myocardial infarction [Unknown]
  - Calculus urinary [Unknown]
  - Subcutaneous abscess [Unknown]
  - Lower respiratory tract infection [Unknown]
  - Road traffic accident [Unknown]
  - Pyrexia [Unknown]
  - Fatigue [Unknown]
  - Headache [Unknown]
  - Gallbladder polyp [Unknown]
